FAERS Safety Report 6987840-X (Version None)
Quarter: 2010Q3

REPORT INFORMATION
  Report Type: 
  Country: None (occurrence: None)
  Receive Date: 20100914
  Receipt Date: 20100902
  Transmission Date: 20110219
  Serious: Yes (Death)
  Sender: FDA-Public Use
  Company Number: FR-003593

PATIENT
  Sex: Male
  Weight: 85 kg

DRUGS (5)
  1. FIRMAGON [Suspect]
     Indication: PROSTATE CANCER
     Dosage: (240 MG 1X SUBCUTANEOUS)
     Route: 058
     Dates: start: 20100811, end: 20100811
  2. AMLODIPINE [Concomitant]
  3. KARDEGIC [Concomitant]
  4. GLUCOPHAGE [Concomitant]
  5. LODOZ [Concomitant]

REACTIONS (2)
  - INJECTION SITE INDURATION [None]
  - SUDDEN DEATH [None]
